FAERS Safety Report 21322002 (Version 8)
Quarter: 2023Q2

REPORT INFORMATION
  Report Type: Report from Study
  Country: US (occurrence: US)
  Receive Date: 20220912
  Receipt Date: 20230523
  Transmission Date: 20230721
  Serious: No
  Sender: FDA-Public Use
  Company Number: US-NOVARTISTESTPH-NVSC2022US202369

PATIENT
  Sex: Female

DRUGS (1)
  1. COSENTYX [Suspect]
     Active Substance: SECUKINUMAB
     Indication: Psoriasis
     Dosage: 300 MG, QMO
     Route: 058

REACTIONS (10)
  - Nasal congestion [Unknown]
  - Illness [Unknown]
  - Injection site pain [Unknown]
  - Injection site bruising [Unknown]
  - Skin exfoliation [Recovering/Resolving]
  - Psoriasis [Recovering/Resolving]
  - Device delivery system issue [Unknown]
  - Product dose omission issue [Unknown]
  - Product preparation error [Unknown]
  - Incorrect dose administered [Unknown]
